FAERS Safety Report 4462118-7 (Version None)
Quarter: 2004Q3

REPORT INFORMATION
  Report Type: 
  Country: None (occurrence: None)
  Receive Date: 20040924
  Receipt Date: 20040924
  Transmission Date: 20050211
  Serious: Yes (Death)
  Sender: FDA-Public Use
  Company Number: None

PATIENT
  Sex: Male
  Weight: 77.5651 kg

DRUGS (9)
  1. CYCLOPHOSPHAMIDE [Suspect]
     Indication: DIFFUSE LARGE B-CELL LYMPHOMA
     Dosage: 1500 MG IV Q 3 WKS
     Route: 042
     Dates: start: 20040524
  2. CYCLOPHOSPHAMIDE [Suspect]
     Indication: DIFFUSE LARGE B-CELL LYMPHOMA
     Dosage: 1500 MG IV Q 3 WKS
     Route: 042
     Dates: start: 20040614
  3. CYCLOPHOSPHAMIDE [Suspect]
     Indication: DIFFUSE LARGE B-CELL LYMPHOMA
     Dosage: 1500 MG IV Q 3 WKS
     Route: 042
     Dates: start: 20040706
  4. RITUXAN [Concomitant]
  5. ADRIAMYCIN PFS [Concomitant]
  6. VINCRINSTINE [Concomitant]
  7. PREDNISONE [Concomitant]
  8. NEULASTA [Concomitant]
  9. PROCRIT [Concomitant]

REACTIONS (4)
  - PLEURAL FIBROSIS [None]
  - PNEUMONITIS [None]
  - PULMONARY FIBROSIS [None]
  - RESPIRATORY FAILURE [None]
